FAERS Safety Report 7845440-3 (Version None)
Quarter: 2011Q4

REPORT INFORMATION
  Report Type: 
  Country: None (occurrence: None)
  Receive Date: 20111025
  Receipt Date: 20111020
  Transmission Date: 20120403
  Serious: Yes (Other)
  Sender: FDA-Public Use
  Company Number: US-ABBOTT-11P-163-0729350-00

PATIENT
  Sex: Male
  Weight: 108.51 kg

DRUGS (10)
  1. PLAVIX [Concomitant]
     Indication: PRODUCT USED FOR UNKNOWN INDICATION
  2. FENOFIBRATE [Suspect]
     Indication: BLOOD TRIGLYCERIDES INCREASED
  3. ASPIRIN [Concomitant]
     Indication: PRODUCT USED FOR UNKNOWN INDICATION
  4. FENOFIBRATE [Suspect]
     Indication: DYSLIPIDAEMIA
     Dosage: 45 MG DAILY
     Dates: end: 20091119
  5. FISH OIL [Concomitant]
     Indication: PRODUCT USED FOR UNKNOWN INDICATION
  6. LIPITOR [Concomitant]
     Indication: PRODUCT USED FOR UNKNOWN INDICATION
  7. VITAMIN TAB [Concomitant]
     Indication: PRODUCT USED FOR UNKNOWN INDICATION
  8. TRILIPIX [Suspect]
     Indication: DYSLIPIDAEMIA
     Dosage: 45 MG DAILY
     Dates: start: 20091119, end: 20101116
  9. TRILIPIX [Suspect]
     Indication: BLOOD TRIGLYCERIDES INCREASED
  10. CO Q10 [Concomitant]
     Indication: PRODUCT USED FOR UNKNOWN INDICATION

REACTIONS (7)
  - DYSLIPIDAEMIA [None]
  - CORONARY ARTERY OCCLUSION [None]
  - NECK PAIN [None]
  - CORONARY ARTERY DISEASE [None]
  - CHEST PAIN [None]
  - PULMONARY EMBOLISM [None]
  - HYPERTENSION [None]
